FAERS Safety Report 22191323 (Version 2)
Quarter: 2023Q2

REPORT INFORMATION
  Report Type: Spontaneous
  Country: US (occurrence: US)
  Receive Date: 20230410
  Receipt Date: 20230511
  Transmission Date: 20230721
  Serious: No
  Sender: FDA-Public Use
  Company Number: US-SA-SAC20230406000203

PATIENT
  Age: 41 Year
  Sex: Female
  Weight: 81.64 kg

DRUGS (7)
  1. DUPIXENT [Suspect]
     Active Substance: DUPILUMAB
     Indication: Dermatitis atopic
     Dosage: 300 MG, QOW
     Route: 058
     Dates: start: 20230314
  2. COLLAGEN [Concomitant]
     Active Substance: COLLAGEN
  3. BIOTIN [Concomitant]
     Active Substance: BIOTIN
  4. ZYRTEC [Concomitant]
     Active Substance: CETIRIZINE HYDROCHLORIDE
  5. ROBITUSSIN COUGH + COLD CF [Concomitant]
  6. ALIVE! ONCE DAILY WOMEN^S ULTRA POTENCY [Concomitant]
  7. ZYRTEC [Concomitant]
     Active Substance: CETIRIZINE HYDROCHLORIDE
     Dosage: UNK

REACTIONS (12)
  - Lacrimation increased [Not Recovered/Not Resolved]
  - Sinusitis [Recovering/Resolving]
  - Productive cough [Recovering/Resolving]
  - Eczema [Not Recovered/Not Resolved]
  - Therapeutic response shortened [Not Recovered/Not Resolved]
  - Conjunctivitis [Recovering/Resolving]
  - Eye discharge [Recovering/Resolving]
  - Purulent discharge [Recovering/Resolving]
  - Swelling of eyelid [Recovering/Resolving]
  - Eye pruritus [Not Recovered/Not Resolved]
  - Eye irritation [Recovering/Resolving]
  - Eye swelling [Recovering/Resolving]

NARRATIVE: CASE EVENT DATE: 20230101
